FAERS Safety Report 10248228 (Version 3)
Quarter: 2014Q3

REPORT INFORMATION
  Report Type: Spontaneous
  Country: PL (occurrence: PL)
  Receive Date: 20140620
  Receipt Date: 20140711
  Transmission Date: 20150326
  Serious: Yes (Death, Life-Threatening, Other)
  Sender: FDA-Public Use
  Company Number: PHHY2014PL067809

PATIENT
  Age: 53 Year
  Sex: Male

DRUGS (6)
  1. CALCITONIN [Suspect]
     Active Substance: CALCITONIN
     Indication: HYPERCALCAEMIA
     Dosage: 100 U, 2-4/24 HOURS
     Route: 058
  2. PAMIDRONATE DISODIUM. [Suspect]
     Active Substance: PAMIDRONATE DISODIUM
     Indication: HYPERCALCAEMIA
     Dosage: 60 MG, UNK
     Route: 042
  3. PAMIDRONATE DISODIUM. [Suspect]
     Active Substance: PAMIDRONATE DISODIUM
     Dosage: 60 MG, UNK
  4. PAMIDRONATE DISODIUM. [Suspect]
     Active Substance: PAMIDRONATE DISODIUM
     Dosage: 60 MG, UNK
     Route: 042
  5. HYDROCORTISONE. [Suspect]
     Active Substance: HYDROCORTISONE
     Indication: HYPERCALCAEMIA
  6. FUROSEMIDE. [Suspect]
     Active Substance: FUROSEMIDE
     Indication: HYPERCALCAEMIA

REACTIONS (8)
  - Hypercalcaemia [Recovering/Resolving]
  - Nausea [Unknown]
  - Bradyphrenia [Unknown]
  - Movement disorder [Unknown]
  - General physical health deterioration [Unknown]
  - Constipation [Unknown]
  - Death [Fatal]
  - Therapeutic response decreased [Unknown]
